FAERS Safety Report 11248643 (Version 2)
Quarter: 2023Q2

REPORT INFORMATION
  Report Type: Spontaneous
  Country: JP (occurrence: VN)
  Receive Date: 20150708
  Receipt Date: 20230428
  Transmission Date: 20230722
  Serious: Yes (Other)
  Sender: FDA-Public Use
  Company Number: JP-CIPLA LTD.-2015VN05390

PATIENT

DRUGS (1)
  1. NEVIRAPINE [Suspect]
     Active Substance: NEVIRAPINE
     Indication: Prophylaxis against HIV infection
     Route: 064

REACTIONS (2)
  - HIV infection [Unknown]
  - Drug resistance [Unknown]
